FAERS Safety Report 25068016 (Version 1)
Quarter: 2025Q1

REPORT INFORMATION
  Report Type: Spontaneous
  Country: PL (occurrence: PL)
  Receive Date: 20250312
  Receipt Date: 20250312
  Transmission Date: 20250409
  Serious: Yes (Hospitalization)
  Sender: MYLAN
  Company Number: PL-MYLANLABS-2025M1019355

PATIENT
  Age: 47 Year
  Sex: Female

DRUGS (4)
  1. IMATINIB [Suspect]
     Active Substance: IMATINIB
     Indication: Indolent systemic mastocytosis
     Dosage: 600 MILLIGRAM, QD, FOR 3?WEEKS
  2. IMATINIB [Suspect]
     Active Substance: IMATINIB
  3. PREDNISONE [Concomitant]
     Active Substance: PREDNISONE
     Indication: Symptomatic treatment
     Dosage: 20 MILLIGRAM, QD
  4. PREDNISONE [Concomitant]
     Active Substance: PREDNISONE
     Dosage: 40 MILLIGRAM, QD, DOSE INCREASED

REACTIONS (1)
  - Papular-purpuric gloves-and-socks syndrome [Recovering/Resolving]
